FAERS Safety Report 6335397-9 (Version None)
Quarter: 2009Q3

REPORT INFORMATION
  Report Type: 
  Country: None (occurrence: None)
  Receive Date: 20090831
  Receipt Date: 20090824
  Transmission Date: 20100115
  Serious: Yes (Hospitalization, Other)
  Sender: FDA-Public Use
  Company Number: PHHY2009AR35295

PATIENT
  Sex: Female

DRUGS (1)
  1. DIOVAN [Suspect]
     Indication: HYPERTENSION
     Dosage: 80 MG, QD
     Dates: start: 20040101, end: 20080402

REACTIONS (9)
  - DECREASED APPETITE [None]
  - DIPLEGIA [None]
  - FALL [None]
  - FATIGUE [None]
  - GUILLAIN-BARRE SYNDROME [None]
  - LIMB DISCOMFORT [None]
  - MUSCULAR WEAKNESS [None]
  - MYOCLONUS [None]
  - SPEECH DISORDER [None]
